FAERS Safety Report 15723600 (Version 1)
Quarter: 2018Q4

REPORT INFORMATION
  Report Type: Spontaneous
  Country: US (occurrence: US)
  Receive Date: 20181214
  Receipt Date: 20181214
  Transmission Date: 20190205
  Serious: Yes (Other)
  Sender: FDA-Public Use
  Company Number: US-SAKK-2018SA339144AA

PATIENT
  Age: 37 Year
  Sex: Male

DRUGS (1)
  1. DUPILUMAB [Suspect]
     Active Substance: DUPILUMAB
     Indication: DERMATITIS ATOPIC
     Route: 065

REACTIONS (9)
  - Ocular surface disease [Recovered/Resolved]
  - Scleral hyperaemia [Recovered/Resolved]
  - Eye irritation [Recovered/Resolved]
  - Conjunctivitis [Recovered/Resolved]
  - Blepharitis [Recovered/Resolved]
  - Eyelid oedema [Recovered/Resolved]
  - Conjunctival hyperaemia [Recovered/Resolved]
  - Eyelid thickening [Recovered/Resolved]
  - Erythema of eyelid [Recovered/Resolved]
